FAERS Safety Report 18481244 (Version 2)
Quarter: 2020Q4

REPORT INFORMATION
  Report Type: Spontaneous
  Country: CA (occurrence: CA)
  Receive Date: 20201109
  Receipt Date: 20201112
  Transmission Date: 20210114
  Serious: Yes (Other)
  Sender: FDA-Public Use
  Company Number: CA-BRACCO-2020CA04532

PATIENT
  Age: 57 Year
  Sex: Female

DRUGS (1)
  1. ISOVUE 300 [Suspect]
     Active Substance: IOPAMIDOL
     Indication: COMPUTERISED TOMOGRAM INTESTINE
     Dosage: 100 ML, SINGLE
     Route: 042
     Dates: start: 20201102, end: 20201102

REACTIONS (1)
  - Contrast media reaction [Recovered/Resolved]

NARRATIVE: CASE EVENT DATE: 20201102
